FAERS Safety Report 5578811-9 (Version None)
Quarter: 2008Q1

REPORT INFORMATION
  Report Type: 
  Country: None (occurrence: None)
  Receive Date: 20080102
  Receipt Date: 20071023
  Transmission Date: 20080703
  Serious: Yes (Other)
  Sender: FDA-Public Use
  Company Number: US-JNJFOC-20071205928

PATIENT
  Age: 43 Year
  Sex: Female
  Weight: 66 kg

DRUGS (7)
  1. FENTANYL [Suspect]
     Indication: PAIN
     Route: 062
  2. METHADONE HCL [Suspect]
     Indication: PAIN
     Route: 065
  3. BUPROPION HCL [Concomitant]
     Indication: DRUG USE FOR UNKNOWN INDICATION
     Route: 065
  4. LISINOPRIL [Concomitant]
     Indication: DRUG USE FOR UNKNOWN INDICATION
     Route: 065
  5. FAMOTIDINE [Concomitant]
     Indication: DRUG USE FOR UNKNOWN INDICATION
     Route: 065
  6. QUETIAPINE [Concomitant]
     Indication: DRUG USE FOR UNKNOWN INDICATION
     Route: 065
  7. NEFAZADONE [Concomitant]
     Indication: DRUG USE FOR UNKNOWN INDICATION
     Route: 065

REACTIONS (3)
  - BREATHING-RELATED SLEEP DISORDER [None]
  - FATIGUE [None]
  - SOMNOLENCE [None]
